FAERS Safety Report 8681857 (Version 3)
Quarter: 2013Q1

REPORT INFORMATION
  Report Type: Spontaneous
  Country: JP (occurrence: None)
  Receive Date: 20120709
  Receipt Date: 20121221
  Transmission Date: 20140127
  Serious: Yes (Hospitalization, Other)
  Sender: FDA-Public Use
  Company Number: DSA_58192_2012

PATIENT
  Age: 61 Year
  Sex: Male
  Weight: 55 kg

DRUGS (17)
  1. ENALAPRIL MALEATE [Suspect]
     Indication: ACUTE MYOCARDIAL INFARCTION
     Dosage: (1.25 MG QD ORAL)
     Route: 048
     Dates: start: 20100529, end: 20120705
  2. NICORANDIL [Concomitant]
     Indication: PRODUCT USED FOR UNKNOWN INDICATION
     Dosage: (5 MG TID)
  3. BISOPROLOL FUMARATE [Concomitant]
     Indication: PRODUCT USED FOR UNKNOWN INDICATION
     Dosage: (0.3125 MG DAILY)
  4. LASIX [Concomitant]
     Indication: PRODUCT USED FOR UNKNOWN INDICATION
     Dosage: (120 MG BID ORAL)
     Route: 048
  5. ASPIRIN [Concomitant]
     Indication: PRODUCT USED FOR UNKNOWN INDICATION
     Dosage: (100 MG QD ORAL)
     Route: 048
  6. PLAVIX [Concomitant]
     Indication: PRODUCT USED FOR UNKNOWN INDICATION
     Dosage: (75 MG QD ORAL)
     Route: 048
  7. TOLVAPTAN [Concomitant]
     Indication: PRODUCT USED FOR UNKNOWN INDICATION
     Dosage: (15 MG QD ORAL)
     Route: 048
  8. ALDACTONE A (ALDACTONE A - SPIRONOLACTONE) 50 MG (NOT SPECIFIED) [Concomitant]
     Indication: PRODUCT USED FOR UNKNOWN INDICATION
     Dosage: (50 MG QD ORAL)
     Route: 048
  9. FERROUS CITRATE [Concomitant]
     Indication: PRODUCT USED FOR UNKNOWN INDICATION
     Dosage: (100 MG BID ORAL)
     Route: 048
  10. MAGNESIUM OXIDE [Concomitant]
     Indication: PRODUCT USED FOR UNKNOWN INDICATION
     Dosage: (250 MG TID ORAL)
     Route: 048
  11. LIPITOR [Concomitant]
     Indication: PRODUCT USED FOR UNKNOWN INDICATION
     Dosage: (40 MG QD ORAL)
     Route: 048
  12. ALLOPURINOL [Concomitant]
     Indication: HYPERURICAEMIA
     Dosage: (DF ORAL)
  13. LANSOPRAZOLE [Concomitant]
     Indication: PRODUCT USED FOR UNKNOWN INDICATION
     Dosage: (DF ORAL)
     Route: 048
  14. HANP [Concomitant]
  15. INJECTION [Concomitant]
  16. ZETIA [Concomitant]
  17. ACARDI [Concomitant]

REACTIONS (22)
  - Interstitial lung disease [None]
  - Pulmonary hypertension [None]
  - Cardiac failure [None]
  - Condition aggravated [None]
  - Malaise [None]
  - Decreased appetite [None]
  - Oedema peripheral [None]
  - Amnesia [None]
  - Hypotension [None]
  - Hyponatraemia [None]
  - Urine output decreased [None]
  - Coronary artery occlusion [None]
  - Pleural effusion [None]
  - Pneumonia [None]
  - Hernia obstructive [None]
  - Muscle atrophy [None]
  - Acute myocardial infarction [None]
  - Gastric ulcer [None]
  - Weight decreased [None]
  - Coronary artery occlusion [None]
  - Ileus [None]
  - Inguinal hernia, obstructive [None]
